FAERS Safety Report 6062761-8 (Version None)
Quarter: 2009Q1

REPORT INFORMATION
  Report Type: 
  Country: None (occurrence: None)
  Receive Date: 20090202
  Receipt Date: 20090202
  Transmission Date: 20090719
  Serious: Yes (Death)
  Sender: FDA-Public Use
  Company Number: None

PATIENT
  Age: 72 Year
  Sex: Female
  Weight: 102 kg

DRUGS (2)
  1. ISOVUE-300 [Suspect]
     Indication: ANGIOGRAM
     Dates: start: 20081019, end: 20081020
  2. ISOVUE-300 [Suspect]
     Indication: ANGIOGRAM
     Dates: start: 20081023, end: 20081023

REACTIONS (4)
  - CARDIAC ARREST [None]
  - DIALYSIS [None]
  - RENAL FAILURE ACUTE [None]
  - RESPIRATORY FAILURE [None]
